FAERS Safety Report 11406286 (Version 2)
Quarter: 2015Q3

REPORT INFORMATION
  Report Type: Spontaneous
  Country: US (occurrence: US)
  Receive Date: 20150821
  Receipt Date: 20150917
  Transmission Date: 20151125
  Serious: No
  Sender: FDA-Public Use
  Company Number: US-PFIZER INC-2015274310

PATIENT
  Age: 51 Year
  Sex: Female
  Weight: 64 kg

DRUGS (23)
  1. CREON [Concomitant]
     Active Substance: PANCRELIPASE AMYLASE\PANCRELIPASE LIPASE\PANCRELIPASE PROTEASE
     Dosage: 36000 IU, UNK (36,000 UNITS BY MOUTH WITH EACH MEAL AND WITH SNACK(S))
     Route: 048
     Dates: start: 201406
  2. TIMOLOL. [Concomitant]
     Active Substance: TIMOLOL
     Dosage: 1 GTT, 2X/DAY (1 DROP INTO THE LEFT EYE TWO TIMES DAILY)
  3. ATIVAN [Concomitant]
     Active Substance: LORAZEPAM
     Indication: ANXIETY
     Dosage: 1 MG, DAILY (AT BEDTIME AS NEEDED)
     Route: 048
  4. OFLOXACIN. [Concomitant]
     Active Substance: OFLOXACIN
     Dosage: 1 GTT, 1X/DAY (1 DROP INTO THE LEFT EYE ONCE DAILY)
  5. MULTIVITAMINS [Concomitant]
     Active Substance: VITAMINS
     Dosage: UNK, 2X/DAY
  6. FLONASE [Concomitant]
     Active Substance: FLUTICASONE PROPIONATE
     Indication: HYPERSENSITIVITY
     Dosage: UNK, 2X/DAY (1-2 SPRAYS EACH NOSTRIL)
     Route: 045
  7. CREON [Concomitant]
     Active Substance: PANCRELIPASE AMYLASE\PANCRELIPASE LIPASE\PANCRELIPASE PROTEASE
     Dosage: UNK (2 CAPSULES WITH MEALS AND 1 CAPSULE WITH SNACKS)
     Route: 048
  8. OMEPRAZOLE. [Concomitant]
     Active Substance: OMEPRAZOLE
     Indication: DYSPEPSIA
     Dosage: 40 MG, 1X/DAY
     Route: 048
  9. MIRTAZAPINE. [Concomitant]
     Active Substance: MIRTAZAPINE
     Dosage: 15 MG, 1X/DAY (ONCE DAILY IN THE EVENING)
     Route: 048
  10. MG-PLUS [Concomitant]
     Dosage: 133 MG, 1X/DAY
     Route: 048
  11. PREDNISOLONE ACETATE. [Concomitant]
     Active Substance: PREDNISOLONE ACETATE
     Dosage: 1 GTT, 2X/DAY (INSTILL 1 DROP INTO THE LEFT EYE TWO TIMES DAILY)
  12. SODIUM CHLORIDE. [Concomitant]
     Active Substance: SODIUM CHLORIDE
     Indication: CONTACT LENS THERAPY
     Dosage: UNK UNK, AS NEEDED
     Route: 055
  13. STOOL SOFTENER [Concomitant]
     Active Substance: DOCUSATE CALCIUM
     Dosage: UNK, 2X/DAY
  14. CALCIUM-D [Concomitant]
     Dosage: UNK, 2X/DAY
  15. AZITHROMYCIN [Concomitant]
     Active Substance: AZITHROMYCIN ANHYDROUS
     Indication: GRAFT VERSUS HOST DISEASE IN LUNG
     Dosage: 250 MG, THREE TIMES WEEKLY (ON MONDAY, WEDNESDAY AND FRIDAY)
     Route: 048
  16. PREDNISOLONE ACETATE. [Concomitant]
     Active Substance: PREDNISOLONE ACETATE
     Dosage: 1 GTT, 4X/DAY (INSTILL 1 DROP INTO THE LEFT EYE FOUR TIMES DAILY)
     Route: 047
  17. RAPAMUNE [Suspect]
     Active Substance: SIROLIMUS
     Indication: GRAFT VERSUS HOST DISEASE
     Dosage: 1 MG, 2X/DAY
     Route: 048
     Dates: start: 20131015
  18. VALACYCLOVIR [Concomitant]
     Active Substance: VALACYCLOVIR HYDROCHLORIDE
     Indication: GRAFT VERSUS HOST DISEASE
     Dosage: 500 MG, 2X/DAY
     Route: 048
  19. SINGULAIR [Concomitant]
     Active Substance: MONTELUKAST SODIUM
     Indication: GRAFT VERSUS HOST DISEASE IN LUNG
     Dosage: 10 MG, 1X/DAY
     Dates: start: 201406
  20. OMEPRAZOLE. [Concomitant]
     Active Substance: OMEPRAZOLE
     Dosage: 40 MG, 1X/DAY
  21. FOLIC ACID. [Concomitant]
     Active Substance: FOLIC ACID
     Dosage: 1 MG, 1X/DAY
     Route: 048
  22. MIRTAZAPINE. [Concomitant]
     Active Substance: MIRTAZAPINE
     Indication: DEPRESSION
     Dosage: UNK, 1X/DAY (ONCE DAILY IN EVENING)
     Route: 048
  23. TIMOLOL. [Concomitant]
     Active Substance: TIMOLOL
     Dosage: UNK, 1X/DAY

REACTIONS (1)
  - Product use issue [Unknown]

NARRATIVE: CASE EVENT DATE: 20131015
